FAERS Safety Report 14325730 (Version 1)
Quarter: 2017Q4

REPORT INFORMATION
  Report Type: Spontaneous
  Country: NL (occurrence: NL)
  Receive Date: 20171226
  Receipt Date: 20171226
  Transmission Date: 20180321
  Serious: Yes (Hospitalization)
  Sender: FDA-Public Use
  Company Number: NL-MYLANLABS-2017M1081874

PATIENT
  Age: 73 Year
  Sex: Female

DRUGS (8)
  1. HYDREA [Concomitant]
     Active Substance: HYDROXYUREA
  2. XARELTO [Concomitant]
     Active Substance: RIVAROXABAN
  3. HYDROCHLOROTHIAZIDE. [Suspect]
     Active Substance: HYDROCHLOROTHIAZIDE
     Indication: HYPERTENSION
     Dosage: 1D1T
     Dates: end: 201710
  4. METOPROLOL. [Suspect]
     Active Substance: METOPROLOL
     Indication: ARRHYTHMIA
     Dosage: 1D1T
  5. HYDROCHLOROTHIAZIDE/VALSARTAN [Suspect]
     Active Substance: HYDROCHLOROTHIAZIDE\VALSARTAN
     Indication: HYPERTENSION
     Dosage: 1D1T
     Dates: end: 201710
  6. SPIRONOLACTONE. [Suspect]
     Active Substance: SPIRONOLACTONE
     Indication: HYPERTENSION
     Dosage: 1D1T
     Dates: end: 201710
  7. HYDRALAZINE [Suspect]
     Active Substance: HYDRALAZINE HYDROCHLORIDE
     Indication: HYPERTENSION
     Dosage: 3D1T
     Dates: end: 201710
  8. OMEPRAZOL [Concomitant]
     Active Substance: OMEPRAZOLE

REACTIONS (2)
  - Toe amputation [Recovered/Resolved with Sequelae]
  - Chillblains [Recovered/Resolved with Sequelae]

NARRATIVE: CASE EVENT DATE: 20160811
